FAERS Safety Report 23890885 (Version 1)
Quarter: 2024Q2

REPORT INFORMATION
  Report Type: Spontaneous
  Country: ZA (occurrence: ZA)
  Receive Date: 20240523
  Receipt Date: 20240523
  Transmission Date: 20240715
  Serious: Yes (Death)
  Sender: FDA-Public Use
  Company Number: ZA-ABBOTT-2024A-1381613

PATIENT
  Age: 60 Year
  Sex: Female

DRUGS (15)
  1. CREON [Suspect]
     Active Substance: PANCRELIPASE AMYLASE\PANCRELIPASE LIPASE\PANCRELIPASE PROTEASE
     Indication: Product used for unknown indication
     Dosage: 300 MGTAKE SIX CAPSULES DAILY??CREON 25000
     Route: 048
  2. CREON [Suspect]
     Active Substance: PANCRELIPASE AMYLASE\PANCRELIPASE LIPASE\PANCRELIPASE PROTEASE
     Indication: Product used for unknown indication
     Dosage: 150 MG TAKE ONE CAPSULE THREE TIMES A DAY?CREON 10000
     Route: 048
  3. ENTIRO [Concomitant]
     Indication: Product used for unknown indication
     Dosage: DIRECTIONS TAKE ONE CAPSULE ORALLY TWICE A DAY AN HOUR APART
     Route: 048
  4. BUDONEB [Concomitant]
     Indication: Asthma
     Dosage: 0.5 MG DIRECTIONS NEBULISE WITH ONE NEBULE TWICE A DAY
     Route: 055
  5. HEPARIN [Concomitant]
     Active Substance: HEPARIN SODIUM
     Indication: Product used for unknown indication
     Dosage: 1000 IU
     Route: 065
  6. Aprepitant combipack eurolab [Concomitant]
     Indication: Product used for unknown indication
     Dosage: DIRECTIONS TAKE 125MG DAY1 THEN 80MG DAY2 AND DAY3,
  7. GEMCITABINE HYDROCHLORIDE [Concomitant]
     Active Substance: GEMCITABINE HYDROCHLORIDE
     Indication: Chemotherapy
     Dosage: 1 G DIRECTIONS ADMINISTER 1G IVIDAY1 DAY8 AND DAY15 Q21
     Route: 030
  8. SODIUM CHLORIDE [Concomitant]
     Active Substance: SODIUM CHLORIDE
     Indication: Product used for unknown indication
     Dosage: AS DIRECTED, ?SODIUM CHLORIDE AFB1306, AFB1307, AFB1328
     Route: 065
  9. PERINDOPRIL [Concomitant]
     Active Substance: PERINDOPRIL
     Indication: Product used for unknown indication
     Dosage: 5 MGTAKE ONE TABLET DAILY
     Route: 048
  10. ETIFOXINE [Concomitant]
     Active Substance: ETIFOXINE
     Indication: Stress
     Dosage: 50 MG DIRECTIONS TAKE ONE CAPSULE ORALLY TWICE A DAY
     Route: 048
  11. Duolin [Concomitant]
     Indication: Asthma
     Dosage: DIRECTIONS NEBULISE WITH ONE NEBULE FOUR TIMES A DAY IF NEC, ?DUOLIN RESPULES
     Route: 055
  12. ZOLPIDEM TARTRATE [Concomitant]
     Active Substance: ZOLPIDEM TARTRATE
     Indication: Insomnia
     Dosage: 10 MG DIRECTIONS TAKE ONE TABLET ORALLY AT NIGHT
     Route: 048
  13. Tronson [Concomitant]
     Indication: Product used for unknown indication
     Dosage: 0.25 MG DIRECTIONS ADMINISTER 0.25MG IVI DAY1,8 AND 15.
     Route: 030
  14. PREDNISONE [Concomitant]
     Active Substance: PREDNISONE
     Indication: Product used for unknown indication
     Dosage: 5 MG DIRECTIONS TAKE TWO TABLETS ORALLY TWICE A DAY AFTER MEAL
     Route: 048
  15. Sandoz Co-amoxyclav [Concomitant]
     Indication: Product used for unknown indication
     Dosage: 1000 MG DIRECTIONS TAKE ONE TABLET ORALLY TWICE A DAY *ANTIBIOTIC
     Route: 048

REACTIONS (1)
  - Death [Fatal]

NARRATIVE: CASE EVENT DATE: 20240404
